FAERS Safety Report 8321609-9 (Version None)
Quarter: 2012Q2

REPORT INFORMATION
  Report Type: 
  Country: None (occurrence: None)
  Receive Date: 20120430
  Receipt Date: 20120423
  Transmission Date: 20120825
  Serious: Yes (Other)
  Sender: FDA-Public Use
  Company Number: SK-B.I. PHARMACEUTICALS,INC./RIDGEFIELD-2012-AP-00343AP

PATIENT
  Sex: Male
  Weight: 103 kg

DRUGS (3)
  1. ATROVENT [Concomitant]
     Route: 055
     Dates: start: 20110101
  2. SPIRIVA RESPIMAT [Suspect]
     Indication: CHRONIC OBSTRUCTIVE PULMONARY DISEASE
     Dosage: 5 MCG
     Route: 055
     Dates: start: 20120101
  3. ECOBEC [Concomitant]
     Dosage: 250 NR
     Route: 055
     Dates: start: 20110101

REACTIONS (1)
  - BRONCHOPNEUMONIA [None]
